FAERS Safety Report 6258018-2 (Version None)
Quarter: 2009Q3

REPORT INFORMATION
  Report Type: 
  Country: None (occurrence: None)
  Receive Date: 20090702
  Receipt Date: 20090615
  Transmission Date: 20100115
  Serious: Yes (Death, Life-Threatening, Hospitalization)
  Sender: FDA-Public Use
  Company Number: 0489

PATIENT
  Age: 62 Year
  Sex: Female

DRUGS (5)
  1. INDOMETHACIN [Suspect]
     Indication: RHEUMATOID ARTHRITIS
     Dosage: PO
     Route: 048
     Dates: start: 20071101, end: 20090314
  2. LEFLUNOMIDE [Suspect]
     Indication: RHEUMATOID ARTHRITIS
     Dosage: PO
     Route: 048
     Dates: start: 20080303, end: 20080314
  3. METOPROLOL TARTRATE [Suspect]
     Indication: HYPERTENSION
     Dosage: PO
     Route: 048
     Dates: start: 20010101, end: 20090314
  4. FENOFIBRATE [Suspect]
     Indication: HYPERCHOLESTEROLAEMIA
     Dosage: PO
     Route: 048
     Dates: start: 20030101, end: 20090314
  5. SERTRALINE HYDROCHLORIDE [Suspect]
     Indication: DEPRESSION
     Dosage: PO
     Route: 048
     Dates: start: 20050505, end: 20090314

REACTIONS (11)
  - ATRIAL FIBRILLATION [None]
  - BUNDLE BRANCH BLOCK RIGHT [None]
  - CARDIAC DISORDER [None]
  - COR PULMONALE ACUTE [None]
  - GENERAL PHYSICAL HEALTH DETERIORATION [None]
  - HEPATOMEGALY [None]
  - MUSCLE DISORDER [None]
  - PULMONARY EMBOLISM [None]
  - RESPIRATORY ARREST [None]
  - SHOCK [None]
  - SINUS TACHYCARDIA [None]
